FAERS Safety Report 6500772-6 (Version None)
Quarter: 2009Q4

REPORT INFORMATION
  Report Type: 
  Country: None (occurrence: None)
  Receive Date: 20091216
  Receipt Date: 20090325
  Transmission Date: 20100525
  Serious: No
  Sender: FDA-Public Use
  Company Number: A0768870A

PATIENT
  Age: 54 Year
  Sex: Female

DRUGS (1)
  1. COMMIT [Suspect]

REACTIONS (3)
  - CONSTIPATION [None]
  - INTENTIONAL DRUG MISUSE [None]
  - PRODUCT QUALITY ISSUE [None]
